FAERS Safety Report 18766637 (Version 1)
Quarter: 2021Q1

REPORT INFORMATION
  Report Type: Spontaneous
  Country: US (occurrence: US)
  Receive Date: 20210121
  Receipt Date: 20210121
  Transmission Date: 20210419
  Serious: Yes (Other)
  Sender: FDA-Public Use
  Company Number: US-SUN PHARMACEUTICAL INDUSTRIES LTD-2021R1-276306

PATIENT
  Age: 35 Year
  Sex: Female

DRUGS (4)
  1. AMPHOTERICIN B LIPOSOME [Suspect]
     Active Substance: AMPHOTERICIN B
     Indication: MUCORMYCOSIS
     Dosage: 10 MILLIGRAM/KILOGRAM , UNK
     Route: 065
  2. AMPICILLIN/SULBACTAM [Suspect]
     Active Substance: AMPICILLIN SODIUM\SULBACTAM SODIUM
     Indication: ANTIFUNGAL TREATMENT
     Dosage: UNK
     Route: 065
  3. SULPHAMETHOXAZOLE/TRIMETHOPRIM [Suspect]
     Active Substance: SULFAMETHOXAZOLE\TRIMETHOPRIM
     Indication: ANTIFUNGAL TREATMENT
     Dosage: UNK
     Route: 065
  4. SEVELAMER [Suspect]
     Active Substance: SEVELAMER
     Indication: HYPERPHOSPHATAEMIA
     Dosage: 2400 MILLIGRAM, TID
     Route: 065

REACTIONS (6)
  - Electrolyte imbalance [Unknown]
  - Hypotension [Unknown]
  - Blood creatinine increased [Unknown]
  - Hyperphosphataemia [Unknown]
  - Acute kidney injury [Unknown]
  - Exposure during pregnancy [Unknown]
